FAERS Safety Report 12998652 (Version 1)
Quarter: 2016Q4

REPORT INFORMATION
  Report Type: Spontaneous
  Country: US (occurrence: US)
  Receive Date: 20161205
  Receipt Date: 20161205
  Transmission Date: 20170207
  Serious: No
  Sender: FDA-Public Use
  Company Number: US-009507513-1611USA008322

PATIENT
  Sex: Female

DRUGS (1)
  1. ENTEREG [Suspect]
     Active Substance: ALVIMOPAN
     Route: 048

REACTIONS (2)
  - Abdominal pain [Unknown]
  - Hyperhidrosis [Unknown]
